FAERS Safety Report 13332196 (Version 2)
Quarter: 2017Q2

REPORT INFORMATION
  Report Type: Spontaneous
  Country: US (occurrence: US)
  Receive Date: 20170314
  Receipt Date: 20170531
  Transmission Date: 20170830
  Serious: No
  Sender: FDA-Public Use
  Company Number: US-JNJFOC-20170113633

PATIENT
  Age: 55 Year
  Sex: Male
  Weight: 58.97 kg

DRUGS (2)
  1. TYLENOL REGULAR STRENGTH [Suspect]
     Active Substance: ACETAMINOPHEN
     Indication: PYREXIA
     Route: 048
     Dates: start: 201701
  2. TYLENOL REGULAR STRENGTH [Suspect]
     Active Substance: ACETAMINOPHEN
     Indication: VIRAL UPPER RESPIRATORY TRACT INFECTION
     Route: 048
     Dates: start: 201701

REACTIONS (5)
  - Foreign body [Recovered/Resolved]
  - Product expiration date issue [Unknown]
  - Product lot number issue [Unknown]
  - Vomiting [Recovered/Resolved]
  - Dysgeusia [Recovered/Resolved]
